FAERS Safety Report 10870429 (Version 3)
Quarter: 2015Q2

REPORT INFORMATION
  Report Type: Report from Study
  Country: JP (occurrence: JP)
  Receive Date: 20150226
  Receipt Date: 20150401
  Transmission Date: 20150821
  Serious: Yes (Death, Other)
  Sender: FDA-Public Use
  Company Number: JP-SA-2015SA008446

PATIENT
  Age: 62 Year
  Sex: Male
  Weight: 73.9 kg

DRUGS (16)
  1. TRYPTANOL [Concomitant]
     Active Substance: AMITRIPTYLINE
  2. ZANTAC [Concomitant]
     Active Substance: RANITIDINE HYDROCHLORIDE
     Indication: PREMEDICATION
     Route: 042
     Dates: start: 20150109, end: 20150109
  3. ADONA [Concomitant]
     Active Substance: CARBAZOCHROME SODIUM SULFONATE
  4. URIEF [Concomitant]
     Active Substance: SILODOSIN
  5. POLARAMINE [Concomitant]
     Active Substance: DEXCHLORPHENIRAMINE MALEATE
     Indication: PREMEDICATION
     Route: 042
     Dates: start: 20150109, end: 20150109
  6. RABEPRAZOLE [Concomitant]
     Active Substance: RABEPRAZOLE
  7. DEXART [Concomitant]
     Active Substance: DEXAMETHASONE SODIUM PHOSPHATE
     Indication: PREMEDICATION
     Route: 042
     Dates: start: 20150109, end: 20150109
  8. JEVTANA [Suspect]
     Active Substance: CABAZITAXEL
     Indication: PROSTATE CANCER
     Route: 042
     Dates: start: 20150209, end: 20150209
  9. LOXOPROFEN [Concomitant]
     Active Substance: LOXOPROFEN
  10. PREDONINE [Concomitant]
     Active Substance: PREDNISOLONE\PREDNISOLONE ACETATE\PREDNISOLONE SODIUM SUCCINATE
     Indication: PROPHYLAXIS
     Dates: start: 20141009, end: 20150103
  11. TRANSAMIN [Concomitant]
     Active Substance: TRANEXAMIC ACID
  12. OXINORM [Concomitant]
     Active Substance: OXYCODONE HYDROCHLORIDE
  13. JEVTANA [Suspect]
     Active Substance: CABAZITAXEL
     Indication: PROSTATE CANCER
     Route: 042
     Dates: start: 20150109, end: 20150109
  14. CALONAL [Concomitant]
     Active Substance: ACETAMINOPHEN
  15. LYRICA [Concomitant]
     Active Substance: PREGABALIN
  16. OXYCONTIN [Concomitant]
     Active Substance: OXYCODONE HYDROCHLORIDE

REACTIONS (4)
  - Vomiting [Unknown]
  - Haemorrhoidal haemorrhage [Fatal]
  - Neutropenia [Recovered/Resolved]
  - Diarrhoea [Fatal]

NARRATIVE: CASE EVENT DATE: 20150116
